FAERS Safety Report 8216029-1 (Version None)
Quarter: 2012Q1

REPORT INFORMATION
  Report Type: 
  Country: None (occurrence: None)
  Receive Date: 20120316
  Receipt Date: 20120313
  Transmission Date: 20120608
  Serious: Yes (Other)
  Sender: FDA-Public Use
  Company Number: US-PFIZER INC-2012047393

PATIENT
  Sex: Female
  Weight: 117.91 kg

DRUGS (2)
  1. TIKOSYN [Suspect]
     Indication: ATRIAL FIBRILLATION
     Dosage: 0.5 MG, 2X/DAY
     Route: 048
     Dates: start: 20120127
  2. ZOLOFT [Suspect]
     Indication: DEPRESSION
     Dosage: 200 MG, 1X/DAY
     Route: 048
     Dates: start: 20060101, end: 20120101

REACTIONS (7)
  - ATRIAL FIBRILLATION [None]
  - DEPRESSION [None]
  - ANXIETY [None]
  - WITHDRAWAL SYNDROME [None]
  - ASTHMA [None]
  - MOOD SWINGS [None]
  - CRYING [None]
